FAERS Safety Report 8382599-6 (Version None)
Quarter: 2012Q2

REPORT INFORMATION
  Report Type: 
  Country: None (occurrence: None)
  Receive Date: 20120524
  Receipt Date: 20120514
  Transmission Date: 20120825
  Serious: Yes (Other)
  Sender: FDA-Public Use
  Company Number: CH-JNJFOC-20120511554

PATIENT
  Sex: Female
  Weight: 54 kg

DRUGS (4)
  1. XARELTO [Suspect]
     Indication: THROMBOSIS PROPHYLAXIS
     Route: 048
     Dates: start: 20120412, end: 20120428
  2. OMEPRAZOLE [Concomitant]
  3. XARELTO [Suspect]
     Indication: HIP ARTHROPLASTY
     Route: 048
     Dates: start: 20120412, end: 20120428
  4. IBUPROFEN [Concomitant]
     Route: 048

REACTIONS (4)
  - HEADACHE [None]
  - TACHYCARDIA [None]
  - RESTLESSNESS [None]
  - DISTURBANCE IN ATTENTION [None]
